FAERS Safety Report 9026446 (Version 1)
Quarter: 2012Q4

REPORT INFORMATION
  Report Type: Spontaneous
  Country: IT (occurrence: None)
  Receive Date: 20121231
  Receipt Date: 20121231
  Transmission Date: 20130627
  Serious: Yes (Hospitalization)
  Sender: FDA-Public Use
  Company Number: 2012034302

PATIENT
  Age: 20 Year
  Sex: Female

DRUGS (1)
  1. FIBRINOGEN CONCENTRATE (HUMAN) [Suspect]
     Indication: AFIBRINOGENEMIA
     Dosage: 2 g 1x/week, Treatment over 15 days Intravenous (not otherwise specified)
     Dates: start: 20050307

REACTIONS (1)
  - Convulsion [None]
